FAERS Safety Report 14649330 (Version 2)
Quarter: 2018Q2

REPORT INFORMATION
  Report Type: Spontaneous
  Country: NL (occurrence: NL)
  Receive Date: 20180316
  Receipt Date: 20180625
  Transmission Date: 20180711
  Serious: Yes (Other)
  Sender: FDA-Public Use
  Company Number: NL-TEVA-2018-NL-870378

PATIENT
  Age: 74 Year
  Sex: Male

DRUGS (1)
  1. METHOTREXAAT TAB 2,5 MG [Suspect]
     Active Substance: METHOTREXATE SODIUM
     Indication: RHEUMATOID ARTHRITIS
     Dosage: 6 TAB PER WEEK
     Route: 065
     Dates: start: 20070703, end: 20090407

REACTIONS (2)
  - Respiratory tract infection [Unknown]
  - Lung disorder [Unknown]

NARRATIVE: CASE EVENT DATE: 20090407
